FAERS Safety Report 25416573 (Version 1)
Quarter: 2025Q2

REPORT INFORMATION
  Report Type: Spontaneous
  Country: HU (occurrence: HU)
  Receive Date: 20250610
  Receipt Date: 20250610
  Transmission Date: 20250717
  Serious: Yes (Other)
  Sender: ROCHE
  Company Number: HU-ROCHE-10000302172

PATIENT

DRUGS (2)
  1. AVASTIN [Suspect]
     Active Substance: BEVACIZUMAB
     Indication: Product used for unknown indication
     Route: 065
  2. CAPECITABINE [Concomitant]
     Active Substance: CAPECITABINE

REACTIONS (3)
  - Diarrhoea [Unknown]
  - Dehydration [Unknown]
  - Colitis [Unknown]
